FAERS Safety Report 21546729 (Version 4)
Quarter: 2025Q4

REPORT INFORMATION
  Report Type: Report from Study
  Country: KR (occurrence: KR)
  Receive Date: 20221103
  Receipt Date: 20251001
  Transmission Date: 20260118
  Serious: Yes (Other)
  Sender: TAKEDA
  Company Number: KR-TAKEDA-2022TUS079567

PATIENT
  Age: 45 Year
  Sex: Female
  Weight: 48 kg

DRUGS (36)
  1. VEDOLIZUMAB [Suspect]
     Active Substance: VEDOLIZUMAB
     Indication: Colitis ulcerative
     Dosage: 300 MILLIGRAM
  2. Feroba you [Concomitant]
     Indication: Iron deficiency anaemia
     Dosage: 256 MILLIGRAM, QD
     Dates: start: 20210810, end: 20220901
  3. Venoferrum [Concomitant]
     Indication: Iron deficiency anaemia
     Dosage: 200 MILLIGRAM
  4. VITAMINS [Concomitant]
     Active Substance: VITAMINS
     Indication: Vitamin supplementation
     Dosage: 5 MILLILITER, QD
     Dates: start: 20220902, end: 20220903
  5. Furtman [Concomitant]
     Indication: Mineral supplementation
     Dosage: 0.2 MILLILITER, QD
     Dates: start: 20220902, end: 20220903
  6. Kabitwin peri [Concomitant]
     Indication: Haematochezia
     Dosage: 1000 MILLILITER, QD
     Dates: start: 20220902, end: 20220903
  7. Kabitwin peri [Concomitant]
     Indication: Ovarian cyst ruptured
     Dosage: 1000 MILLILITER, QD
     Dates: start: 20230124, end: 20230124
  8. PANTOPRAZOLE SODIUM [Concomitant]
     Active Substance: PANTOPRAZOLE SODIUM
     Indication: Gastritis prophylaxis
     Dosage: 40 MILLIGRAM, QD
     Dates: start: 20220902, end: 20220905
  9. CEFTRIAXONE SODIUM [Concomitant]
     Active Substance: CEFTRIAXONE SODIUM
     Indication: Haematochezia
     Dosage: 2 GRAM, QD
     Dates: start: 20220902, end: 20220902
  10. CIPROFLOXACIN [Concomitant]
     Active Substance: CIPROFLOXACIN
     Indication: Haematochezia
     Dosage: 400 MILLIGRAM, BID
     Dates: start: 20220903, end: 20220906
  11. Profa [Concomitant]
     Indication: Haematochezia
     Dosage: 1 GRAM, QD
     Dates: start: 20220904, end: 20220904
  12. Peri olimel n4e [Concomitant]
     Indication: Haematochezia
     Dosage: 1.5 LITER, QD
     Dates: start: 20220904, end: 20220913
  13. MESALAMINE [Concomitant]
     Active Substance: MESALAMINE
     Dosage: 4800 MILLIGRAM, QD
     Dates: start: 20201215
  14. ASACOL [Concomitant]
     Active Substance: MESALAMINE
     Dosage: 100 MILLILITER, BID
     Dates: start: 20201215, end: 20220202
  15. ASACOL [Concomitant]
     Active Substance: MESALAMINE
     Dosage: 500 MILLIGRAM, QD
     Dates: start: 20220203
  16. HYDROCORTISONE SODIUM SUCCINATE [Concomitant]
     Active Substance: HYDROCORTISONE SODIUM SUCCINATE
     Indication: Prophylaxis
     Dosage: 100 MILLIGRAM
     Dates: start: 20220104, end: 20220203
  17. HYDROCORTISONE SODIUM SUCCINATE [Concomitant]
     Active Substance: HYDROCORTISONE SODIUM SUCCINATE
     Dosage: 70 MILLIGRAM, TID
     Dates: start: 20220905, end: 20220908
  18. HYDROCORTISONE SODIUM SUCCINATE [Concomitant]
     Active Substance: HYDROCORTISONE SODIUM SUCCINATE
     Dosage: 60 MILLIGRAM, TID
     Dates: start: 20220909, end: 20220911
  19. HYDROCORTISONE SODIUM SUCCINATE [Concomitant]
     Active Substance: HYDROCORTISONE SODIUM SUCCINATE
     Dosage: 50 MILLIGRAM, TID
     Dates: start: 20220912, end: 20220912
  20. Peniramin [Concomitant]
     Indication: Prophylaxis
     Dosage: 4 MILLIGRAM
     Dates: start: 20220104, end: 20220203
  21. ULTRACET [Concomitant]
     Active Substance: ACETAMINOPHEN\TRAMADOL HYDROCHLORIDE
     Indication: Polyarthritis
     Dosage: UNK UNK, BID
     Dates: start: 20220905, end: 20220911
  22. CELEBREX [Concomitant]
     Active Substance: CELECOXIB
     Indication: Polyarthritis
     Dosage: 200 MILLIGRAM, QD
     Dates: start: 20220912, end: 20220919
  23. Solondo [Concomitant]
     Dosage: 30 MILLIGRAM, QD
     Dates: start: 20220913, end: 20220919
  24. Solondo [Concomitant]
     Dosage: 27.5 MILLIGRAM, QD
     Dates: start: 20220920, end: 20220926
  25. Solondo [Concomitant]
     Dosage: 25 MILLIGRAM, QD
     Dates: start: 20220927, end: 20221004
  26. Solondo [Concomitant]
     Dosage: 22.5 MILLIGRAM, QD
     Dates: start: 20221005, end: 20221011
  27. Solondo [Concomitant]
     Dosage: 20 MILLIGRAM, QD
     Dates: start: 20221012, end: 20221018
  28. Solondo [Concomitant]
     Dosage: 17.5 MILLIGRAM, QD
     Dates: start: 20221019, end: 20221025
  29. Solondo [Concomitant]
     Dosage: 15 MILLIGRAM, QD
     Dates: start: 20221026, end: 20221101
  30. Solondo [Concomitant]
     Dosage: 12.5 MILLIGRAM, QD
     Dates: start: 20221102, end: 20221108
  31. Solondo [Concomitant]
     Dosage: 10 MILLIGRAM, QD
     Dates: start: 20221109, end: 20221115
  32. Solondo [Concomitant]
     Dosage: 7.5 MILLIGRAM, QD
     Dates: start: 20221116, end: 20221122
  33. Solondo [Concomitant]
     Dosage: 5 MILLIGRAM, QD
     Dates: start: 20221123, end: 20221129
  34. MEPERIDINE HYDROCHLORIDE [Concomitant]
     Active Substance: MEPERIDINE HYDROCHLORIDE
     Indication: Ovarian cyst ruptured
     Dosage: 25 MILLIGRAM
     Dates: start: 20230124, end: 20230125
  35. TRAMADOL HYDROCHLORIDE [Concomitant]
     Active Substance: TRAMADOL HYDROCHLORIDE
     Indication: Ovarian cyst ruptured
     Dosage: 500 MILLIGRAM
     Dates: start: 20230123, end: 20230123
  36. Anyfen [Concomitant]
     Indication: Ovarian cyst ruptured
     Dosage: 400 MILLIGRAM, TID
     Dates: start: 20230125, end: 20230201

REACTIONS (1)
  - Polyarthritis [Recovering/Resolving]

NARRATIVE: CASE EVENT DATE: 20220905
